FAERS Safety Report 9135181 (Version 1)
Quarter: 2013Q1

REPORT INFORMATION
  Report Type: Report from Study
  Country: JP (occurrence: JP)
  Receive Date: 20130304
  Receipt Date: 20130304
  Transmission Date: 20140127
  Serious: Yes (Hospitalization, Other)
  Sender: FDA-Public Use
  Company Number: JP-ASTELLAS-2013US002213

PATIENT
  Age: 58 Year
  Sex: Male

DRUGS (20)
  1. ERLOTINIB TABLET [Suspect]
     Indication: PANCREATIC CARCINOMA
     Dosage: 100 MG, UID/QD
     Route: 048
     Dates: start: 20120803, end: 20121217
  2. GEMCITABINE HYDROCHLORIDE [Suspect]
     Indication: PANCREATIC CARCINOMA
     Dosage: 1000 MG/M2, UID/QD
     Route: 042
     Dates: start: 20120803, end: 20120803
  3. GEMCITABINE HYDROCHLORIDE [Suspect]
     Dosage: 1000 MG/M2, UID/QD
     Route: 042
     Dates: start: 20120810, end: 20120810
  4. GEMCITABINE HYDROCHLORIDE [Suspect]
     Dosage: 1000 MG/M2, UID/QD
     Route: 042
     Dates: start: 20120817, end: 20120817
  5. GEMCITABINE HYDROCHLORIDE [Suspect]
     Dosage: 1000 MG/M2, UID/QD
     Route: 042
     Dates: start: 20120831, end: 20120831
  6. GEMCITABINE HYDROCHLORIDE [Suspect]
     Dosage: 1000 MG/M2, UID/QD
     Route: 042
     Dates: start: 20120907, end: 20120907
  7. GEMCITABINE HYDROCHLORIDE [Suspect]
     Dosage: 1000 MG/M2, UID/QD
     Route: 042
     Dates: start: 20120914, end: 20120914
  8. GEMCITABINE HYDROCHLORIDE [Suspect]
     Dosage: 1000 MG/M2, UID/QD
     Route: 042
     Dates: start: 20120928, end: 20120928
  9. GEMCITABINE HYDROCHLORIDE [Suspect]
     Dosage: 1000 MG/M2, UID/QD
     Route: 042
     Dates: start: 20121005, end: 20121005
  10. GEMCITABINE HYDROCHLORIDE [Suspect]
     Dosage: 1000 MG/M2, UID/QD
     Route: 042
     Dates: start: 20121012, end: 20121012
  11. GEMCITABINE HYDROCHLORIDE [Suspect]
     Dosage: 1000 MG/M2, UID/QD
     Route: 042
     Dates: start: 20121029, end: 20121029
  12. GEMCITABINE HYDROCHLORIDE [Suspect]
     Dosage: 1000 MG/M2, UID/QD
     Route: 042
     Dates: start: 20121105, end: 20121105
  13. GEMCITABINE HYDROCHLORIDE [Suspect]
     Dosage: 1000 MG/M2, UID/QD
     Route: 042
     Dates: start: 20121112, end: 20121112
  14. CELECOXIB [Concomitant]
     Dosage: 200 MG, UID/QD
     Dates: start: 20120730, end: 20121220
  15. TAKEPRON [Concomitant]
     Dosage: 15 MG, UID/QD
     Route: 048
     Dates: start: 20120730, end: 20121220
  16. BASEN [Concomitant]
     Indication: PRODUCT USED FOR UNKNOWN INDICATION
     Dosage: 0.6 MG, UID/QD
     Route: 048
     Dates: start: 20120914, end: 20121023
  17. MAGMITT [Concomitant]
     Indication: PRODUCT USED FOR UNKNOWN INDICATION
     Dosage: 1980 MG, UID/QD
     Route: 048
     Dates: start: 20121019, end: 20121203
  18. OXYCONTIN [Concomitant]
     Indication: PRODUCT USED FOR UNKNOWN INDICATION
     Dosage: 10 MG, UID/QD
     Route: 048
     Dates: start: 20121203, end: 20121223
  19. OXINORM                            /00045603/ [Concomitant]
     Indication: PRODUCT USED FOR UNKNOWN INDICATION
     Dosage: 2.5 MG, UNKNOWN/D
     Route: 048
     Dates: start: 20121203, end: 20121231
  20. NOVAMIN                            /00391002/ [Concomitant]
     Indication: PRODUCT USED FOR UNKNOWN INDICATION
     Dosage: 10 MG, UID/QD
     Route: 048
     Dates: start: 20121203, end: 20121203

REACTIONS (8)
  - Pain [Recovering/Resolving]
  - Malignant neoplasm progression [Unknown]
  - Palmar-plantar erythrodysaesthesia syndrome [Recovering/Resolving]
  - Decreased appetite [Unknown]
  - Metastases to meninges [Unknown]
  - Stomatitis [Recovering/Resolving]
  - Rash [Recovering/Resolving]
  - Pharyngitis [Recovering/Resolving]
